FAERS Safety Report 22601430 (Version 1)
Quarter: 2023Q2

REPORT INFORMATION
  Report Type: Spontaneous
  Country: US (occurrence: US)
  Receive Date: 20230614
  Receipt Date: 20230614
  Transmission Date: 20230722
  Serious: No
  Sender: FDA-Public Use
  Company Number: US-RIGEL Pharmaceuticals, INC-2023FOS000378

PATIENT
  Sex: Female
  Weight: 92.517 kg

DRUGS (1)
  1. TAVALISSE [Suspect]
     Active Substance: FOSTAMATINIB
     Indication: Immune thrombocytopenia
     Dosage: 100 MG, BID
     Route: 048
     Dates: start: 20221121, end: 20230407

REACTIONS (4)
  - Bone pain [Unknown]
  - Headache [Unknown]
  - Balance disorder [Unknown]
  - Dizziness [Unknown]
